FAERS Safety Report 9525286 (Version 1)
Quarter: 2013Q1

REPORT INFORMATION
  Report Type: Spontaneous
  Country: US (occurrence: None)
  Receive Date: 20130305
  Receipt Date: 20130305
  Transmission Date: 20140127
  Serious: Yes (Other)
  Sender: FDA-Public Use
  Company Number: 163-21880-12023186

PATIENT
  Age: 81 Year
  Sex: Male
  Weight: 68.04 kg

DRUGS (7)
  1. REVLIMID [Suspect]
     Indication: PLASMA CELL MYELOMA
     Dosage: 10 MG, 1 IN 1 D, PO
     Route: 048
     Dates: start: 20101006
  2. BACTRIM (BACTRIM) (SULFAMETHOXAZOLE, TRIMETHOPRIM) [Concomitant]
  3. DRONABINOL [Concomitant]
  4. FLORASTOR (SACCHAROMYCES BOULARDII) [Concomitant]
  5. GABAPENTIN (GABAPENTIN) [Concomitant]
  6. OMEPRAZOLE (OMEPRAZOLE) [Concomitant]
  7. VANCOMYCIN (VANCOMYCIN) [Concomitant]

REACTIONS (2)
  - Haemorrhage [None]
  - White blood cell count abnormal [None]
